FAERS Safety Report 16680264 (Version 1)
Quarter: 2019Q3

REPORT INFORMATION
  Report Type: Report from Study
  Country: MX (occurrence: MX)
  Receive Date: 20190807
  Receipt Date: 20190807
  Transmission Date: 20191004
  Serious: Yes (Other)
  Sender: FDA-Public Use
  Company Number: PHHY2019MX183564

PATIENT
  Age: 56 Year
  Sex: Female
  Weight: 62 kg

DRUGS (2)
  1. GALVUS MET [Suspect]
     Active Substance: METFORMIN HYDROCHLORIDE\VILDAGLIPTIN
     Dosage: 1 DF, BID ((METFORMIN 1000 MG, VILDAGLIPTIN 50 MG)
     Route: 048
     Dates: start: 201804
  2. GALVUS MET [Suspect]
     Active Substance: METFORMIN HYDROCHLORIDE\VILDAGLIPTIN
     Indication: BLOOD GLUCOSE ABNORMAL
     Dosage: 3 DF, QD
     Route: 048

REACTIONS (5)
  - Incorrect dose administered [Unknown]
  - Blood glucose decreased [Unknown]
  - Product prescribing error [Unknown]
  - Blood glucose increased [Not Recovered/Not Resolved]
  - Dizziness [Unknown]

NARRATIVE: CASE EVENT DATE: 20190805
